FAERS Safety Report 21706274 (Version 1)
Quarter: 2022Q4

REPORT INFORMATION
  Report Type: Report from Study
  Country: DE (occurrence: DE)
  Receive Date: 20221209
  Receipt Date: 20221209
  Transmission Date: 20230113
  Serious: Yes (Other)
  Sender: FDA-Public Use
  Company Number: DE-MYLANLABS-2022M1136889

PATIENT
  Sex: Female

DRUGS (6)
  1. CISPLATIN [Suspect]
     Active Substance: CISPLATIN
     Indication: Squamous cell carcinoma
     Dosage: 75 MILLIGRAM/SQ. METER, CYCLE (VIA AN INTRAVENOUS PORT CATHETER SYSTEM; FOR 60 MINUTES)
     Route: 042
  2. CISPLATIN [Suspect]
     Active Substance: CISPLATIN
     Indication: Cervix carcinoma stage II
  3. PACLITAXEL [Suspect]
     Active Substance: PACLITAXEL
     Indication: Squamous cell carcinoma
     Dosage: 175 MILLIGRAM/SQ. METER, CYCLE (VIA AN INTRAVENOUS PORT CATHETER SYSTEM; OVER....
     Route: 042
  4. PACLITAXEL [Suspect]
     Active Substance: PACLITAXEL
     Indication: Cervix carcinoma stage II
  5. IFOSFAMIDE [Suspect]
     Active Substance: IFOSFAMIDE
     Indication: Squamous cell carcinoma
     Dosage: 5 GRAM PER SQUARE METRE, CYCLE,~5G/M2; VIA AN INTRAVENOUS PORT CATHETER SYSTEM...
     Route: 042
  6. IFOSFAMIDE [Suspect]
     Active Substance: IFOSFAMIDE
     Indication: Cervix carcinoma stage II

REACTIONS (1)
  - Drug ineffective [Unknown]
